FAERS Safety Report 16708090 (Version 10)
Quarter: 2022Q1

REPORT INFORMATION
  Report Type: Report from Study
  Country: JP (occurrence: JP)
  Receive Date: 20190815
  Receipt Date: 20220317
  Transmission Date: 20220423
  Serious: Yes (Life-Threatening, Hospitalization, Other)
  Sender: FDA-Public Use
  Company Number: JP-ALEXION-A201912016

PATIENT
  Age: 76 Year
  Sex: Female
  Weight: 51 kg

DRUGS (8)
  1. SOLIRIS [Suspect]
     Active Substance: ECULIZUMAB
     Dosage: 1200 MG, Q2W
     Route: 042
     Dates: start: 20190123
  2. SOLIRIS [Suspect]
     Active Substance: ECULIZUMAB
     Indication: Myasthenia gravis
     Dosage: 900 MG, QW
     Route: 042
     Dates: start: 20181226, end: 20190116
  3. MESTINON [Concomitant]
     Active Substance: PYRIDOSTIGMINE BROMIDE
     Indication: Myasthenia gravis
     Dosage: 30 MG, BID
     Route: 048
     Dates: start: 20180610
  4. MESTINON [Concomitant]
     Active Substance: PYRIDOSTIGMINE BROMIDE
     Dosage: 30 MG, BID
     Route: 048
     Dates: start: 20181226
  5. PREDONINE                          /00016201/ [Concomitant]
     Dosage: 10 MG, QD
     Route: 048
     Dates: start: 20181226
  6. PREDONINE                          /00016201/ [Concomitant]
     Indication: Myasthenia gravis
     Dosage: 10-15 MG, QD
     Route: 048
     Dates: start: 20171004
  7. TACROLIMUS [Concomitant]
     Active Substance: TACROLIMUS
     Dosage: 1 MG, QD
     Route: 048
     Dates: start: 20181226
  8. TACROLIMUS [Concomitant]
     Active Substance: TACROLIMUS
     Indication: Myasthenia gravis
     Dosage: 1-3 MG, QD
     Route: 048
     Dates: start: 20171016

REACTIONS (6)
  - Acute myocardial infarction [Recovering/Resolving]
  - Gastrointestinal polyp haemorrhage [Unknown]
  - Atrial fibrillation [Unknown]
  - Myasthenia gravis [Recovering/Resolving]
  - Diarrhoea [Unknown]
  - Nausea [Unknown]

NARRATIVE: CASE EVENT DATE: 20190501
